FAERS Safety Report 4916632-8 (Version None)
Quarter: 2006Q1

REPORT INFORMATION
  Report Type: 
  Country: None (occurrence: None)
  Receive Date: 20060216
  Receipt Date: 20060216
  Transmission Date: 20060701
  Serious: Yes (Other)
  Sender: FDA-Public Use
  Company Number: None

PATIENT
  Sex: Female
  Weight: 63.5036 kg

DRUGS (1)
  1. LEVAQUIN [Suspect]
     Indication: URETHRITIS
     Dosage: 500 MG ONCE/DAY PO
     Route: 048
     Dates: start: 20060213, end: 20060214

REACTIONS (3)
  - BURNING SENSATION [None]
  - DIZZINESS [None]
  - URTICARIA [None]
